FAERS Safety Report 20781313 (Version 16)
Quarter: 2022Q4

REPORT INFORMATION
  Report Type: Spontaneous
  Country: GB (occurrence: GB)
  Receive Date: 20220504
  Receipt Date: 20221221
  Transmission Date: 20230113
  Serious: Yes (Death, Other)
  Sender: FDA-Public Use
  Company Number: GB-MHRA-ADR 24754742

PATIENT
  Sex: Female

DRUGS (16)
  1. ONDANSETRON [Suspect]
     Active Substance: ONDANSETRON
     Indication: Product used for unknown indication
     Dosage: UNK, PRN (AS NECESSARY)
     Route: 050
  2. CIPROFLOXACIN [Suspect]
     Active Substance: CIPROFLOXACIN
     Indication: Product used for unknown indication
     Dosage: UNK, MODIFIED-RELEASE TABLET
     Route: 065
  3. CIPROFLOXACIN [Suspect]
     Active Substance: CIPROFLOXACIN
     Dosage: UNK, (SOLUTION FOR INFUSION)
     Route: 065
  4. CIPROFLOXACIN [Suspect]
     Active Substance: CIPROFLOXACIN
     Dosage: UNK, INJECTION
     Route: 050
  5. CIPROFLOXACIN LACTATE [Suspect]
     Active Substance: CIPROFLOXACIN LACTATE
     Indication: Product used for unknown indication
     Dosage: 2 DOSAGE FORM, (2 PUFFS) (AEROSOL INHALATION), 25 MCG, (DRYPOWDER INHALER DEVICE INHALER), INTRAVENO
     Route: 050
  6. CIPROFLOXACIN LACTATE [Suspect]
     Active Substance: CIPROFLOXACIN LACTATE
     Dosage: UNK (MODIFIED RELEASE TABLET)
     Route: 050
  7. ENOXAPARIN [Suspect]
     Active Substance: ENOXAPARIN
     Indication: Product used for unknown indication
     Dosage: UNK, SOLUTION FOR INJECTION
     Route: 050
  8. ALBUTEROL SULFATE [Suspect]
     Active Substance: ALBUTEROL SULFATE
     Indication: Product used for unknown indication
     Dosage: 110 MICROGRAM, UNK, (SALMETEROL XINAFOATE DISKUS DRY POWDER, INHALER DEVICE)
     Route: 050
  9. ALBUTEROL SULFATE [Suspect]
     Active Substance: ALBUTEROL SULFATE
     Dosage: 25 MICROGRAM, UNK, (AEROSOL INHALATION (CFC FREE) 2 PUFF(S))
     Route: 050
  10. ALBUTEROL SULFATE [Suspect]
     Active Substance: ALBUTEROL SULFATE
     Dosage: 2 DOSAGE FORM, 2 DF (2 PUFFS)(AEROSOL INHALATION)2 PUFF(S) 25 MCG(DRY POWDER INHALER DEVICE INHALER)
     Route: 050
  11. ALBUTEROL SULFATE [Suspect]
     Active Substance: ALBUTEROL SULFATE
     Dosage: 100 MICROGRAM, SALMETEROL XINAFOATE DISKUS DRY POWDER
     Route: 050
  12. SALMETEROL XINAFOATE [Suspect]
     Active Substance: SALMETEROL XINAFOATE
     Indication: Product used for unknown indication
     Dosage: 100 MILLIGRAM, INHALATION POWDER
     Route: 050
  13. SALMETEROL XINAFOATE [Suspect]
     Active Substance: SALMETEROL XINAFOATE
     Dosage: 25 UG, PRN, 2 DF (2 PUFFS) (AEROSOL INHALATION) 2 PUFFS, 25 MCG (DRY POWDER INHALER DEVICE INHALER
     Route: 050
  14. SALMETEROL XINAFOATE [Suspect]
     Active Substance: SALMETEROL XINAFOATE
     Dosage: 110 MICROGRAM, UNK
     Route: 050
  15. SALMETEROL XINAFOATE [Suspect]
     Active Substance: SALMETEROL XINAFOATE
     Dosage: 25 MICROGRAM, 2 PUFF(S), POWDER AND SOLVENT FOR ENDOSINUSIAL SOLUTION, 25 UG, POWDER AND SOLVENT,INH
     Route: 050
  16. SEREVENT DISKUS [Suspect]
     Active Substance: SALMETEROL XINAFOATE
     Indication: Product used for unknown indication
     Dosage: 100 MICROGRAM, UNK (SALMETEROL XINAFOATE DISKUS DRY POWDER INHALER DEVICE), INHALATION POWDER
     Route: 050

REACTIONS (2)
  - Dysphonia [Fatal]
  - Death [Fatal]
